APPROVED DRUG PRODUCT: PROMETHAZINE HYDROCHLORIDE
Active Ingredient: PROMETHAZINE HYDROCHLORIDE
Strength: 50MG
Dosage Form/Route: SUPPOSITORY;RECTAL
Application: A040449 | Product #001
Applicant: ABLE LABORATORIES INC
Approved: Feb 27, 2003 | RLD: No | RS: No | Type: DISCN